FAERS Safety Report 13095954 (Version 1)
Quarter: 2017Q1

REPORT INFORMATION
  Report Type: Spontaneous
  Country: GB (occurrence: GB)
  Receive Date: 20170109
  Receipt Date: 20170109
  Transmission Date: 20170428
  Serious: Yes (Life-Threatening, Hospitalization)
  Sender: FDA-Public Use
  Company Number: GB-AUROBINDO-AUR-APL-2016-16180

PATIENT
  Age: 49 Year
  Sex: Male

DRUGS (2)
  1. NAPROXEN 500MG [Suspect]
     Active Substance: NAPROXEN
     Indication: HEADACHE
     Dosage: 500 MG, TWO TIMES A DAY
     Route: 048
     Dates: start: 20161115, end: 20161203
  2. ANADIN EXTRA [Suspect]
     Active Substance: ACETAMINOPHEN\ASPIRIN\CAFFEINE
     Indication: HEADACHE
     Dosage: 1 DF, UNK
     Route: 048
     Dates: start: 20161115, end: 20161203

REACTIONS (3)
  - Gastric ulcer perforation [Recovered/Resolved with Sequelae]
  - Contraindicated product administered [Unknown]
  - Gastrointestinal haemorrhage [Recovered/Resolved with Sequelae]

NARRATIVE: CASE EVENT DATE: 20161203
